FAERS Safety Report 4522040-4 (Version None)
Quarter: 2004Q4

REPORT INFORMATION
  Report Type: 
  Country: None (occurrence: None)
  Receive Date: 20041207
  Receipt Date: 20041118
  Transmission Date: 20050328
  Serious: Yes (Other)
  Sender: FDA-Public Use
  Company Number: USA041184057

PATIENT
  Age: 76 Year
  Sex: Female
  Weight: 66 kg

DRUGS (15)
  1. FORTEO [Suspect]
     Indication: OSTEOPOROSIS
     Dosage: 20 UG/1 DAY
     Dates: start: 20040101
  2. SYNTHROID [Concomitant]
  3. LIPITOR [Concomitant]
  4. AMBIEN [Concomitant]
  5. ACTONEL [Concomitant]
  6. GLUCOSAMINE CHONDROITIN [Concomitant]
  7. VITAMIN E [Concomitant]
  8. VITAMIN D [Concomitant]
  9. SELENIUM TRACE METAL ADDITIVE [Concomitant]
  10. B100 [Concomitant]
  11. ACIDOPHILUS [Concomitant]
  12. LUTEIN [Concomitant]
  13. MULTI-VITAMIN [Concomitant]
  14. CALCIUM CITRATE [Concomitant]
  15. BILBERRY [Concomitant]

REACTIONS (6)
  - INTERVERTEBRAL DISC PROTRUSION [None]
  - JOINT RANGE OF MOTION DECREASED [None]
  - MEDICATION ERROR [None]
  - NERVE COMPRESSION [None]
  - NERVE INJURY [None]
  - PHARMACEUTICAL PRODUCT COMPLAINT [None]
